FAERS Safety Report 5262771-4 (Version None)
Quarter: 2007Q1

REPORT INFORMATION
  Report Type: 
  Country: None (occurrence: None)
  Receive Date: 20070312
  Receipt Date: 20070305
  Transmission Date: 20070707
  Serious: Yes (Other)
  Sender: FDA-Public Use
  Company Number: US-GLAXOSMITHKLINE-A0642327A

PATIENT
  Age: 23 Year
  Sex: Female

DRUGS (3)
  1. LAMICTAL [Suspect]
     Indication: EPILEPSY
     Dosage: 550MG PER DAY
     Route: 048
     Dates: start: 20060721, end: 20061115
  2. LAMICTAL [Suspect]
     Dosage: 750MG PER DAY
     Route: 048
     Dates: start: 20061115
  3. PRENATAL VITAMINS [Concomitant]

REACTIONS (2)
  - STILLBIRTH [None]
  - UTERINE CONTRACTIONS ABNORMAL [None]
